FAERS Safety Report 11138085 (Version 2)
Quarter: 2015Q2

REPORT INFORMATION
  Report Type: Report from Study
  Country: VE (occurrence: VE)
  Receive Date: 20150526
  Receipt Date: 20150609
  Transmission Date: 20150821
  Serious: Yes (Other)
  Sender: FDA-Public Use
  Company Number: PHHY2015VE059658

PATIENT
  Sex: Female

DRUGS (6)
  1. BERODUAL [Concomitant]
     Active Substance: FENOTEROL HYDROBROMIDE\IPRATROPIUM BROMIDE
     Indication: CHRONIC OBSTRUCTIVE PULMONARY DISEASE
     Dosage: UNK, QD
     Route: 065
     Dates: start: 2005
  2. ALOVENT//IPRATROPIUM BROMIDE [Concomitant]
     Indication: CHRONIC OBSTRUCTIVE PULMONARY DISEASE
     Dosage: UNK, QD
     Route: 065
     Dates: start: 2005
  3. FOLIC ACID. [Concomitant]
     Active Substance: FOLIC ACID
     Indication: MEMORY IMPAIRMENT
     Dosage: 10 MG, QD
     Route: 065
  4. MIFLONIDE [Suspect]
     Active Substance: BUDESONIDE
     Indication: CHRONIC OBSTRUCTIVE PULMONARY DISEASE
     Dosage: 400 UG, UNK
     Route: 065
     Dates: start: 2005
  5. OMEPRAZOLE. [Concomitant]
     Active Substance: OMEPRAZOLE
     Indication: GASTRITIS PROPHYLAXIS
     Dosage: 20 MG, QD
     Route: 065
     Dates: start: 2005
  6. FORADIL [Suspect]
     Active Substance: FORMOTEROL FUMARATE
     Indication: CHRONIC OBSTRUCTIVE PULMONARY DISEASE
     Dosage: 1200 MG, QD
     Route: 055
     Dates: start: 2005

REACTIONS (3)
  - Spinal column injury [Recovered/Resolved]
  - Spinal fracture [Recovered/Resolved]
  - Osteoporosis [Recovered/Resolved]
